FAERS Safety Report 22039274 (Version 1)
Quarter: 2023Q1

REPORT INFORMATION
  Report Type: Spontaneous
  Country: US (occurrence: US)
  Receive Date: 20230227
  Receipt Date: 20230227
  Transmission Date: 20230417
  Serious: Yes (Death, Hospitalization, Other)
  Sender: FDA-Public Use
  Company Number: US-SANOFI-01503035

PATIENT
  Sex: Male

DRUGS (2)
  1. LOVENOX [Suspect]
     Active Substance: ENOXAPARIN SODIUM
     Indication: Cardiac valve disease
     Dosage: 40 MG, QD
  2. LOVENOX [Suspect]
     Active Substance: ENOXAPARIN SODIUM
     Dosage: 110 MG, BID

REACTIONS (18)
  - Death [Fatal]
  - Hospitalisation [Unknown]
  - Haematochezia [Unknown]
  - Haematemesis [Unknown]
  - Abdominal pain upper [Unknown]
  - Extra dose administered [Unknown]
  - Feeling abnormal [Unknown]
  - Epistaxis [Unknown]
  - Cyanosis [Unknown]
  - Product use in unapproved indication [Unknown]
  - Erythema [Unknown]
  - Rash [Unknown]
  - Hypophagia [Unknown]
  - Contusion [Unknown]
  - Rash erythematous [Unknown]
  - Swelling [Unknown]
  - Pruritus [Unknown]
  - Intentional overdose [Unknown]
